FAERS Safety Report 7231232-5 (Version None)
Quarter: 2011Q1

REPORT INFORMATION
  Report Type: 
  Country: None (occurrence: None)
  Receive Date: 20110118
  Receipt Date: 20110111
  Transmission Date: 20110831
  Serious: Yes (Other)
  Sender: FDA-Public Use
  Company Number: B0693556A

PATIENT
  Sex: Female

DRUGS (1)
  1. SERETIDE [Suspect]
     Dosage: 1000MCG PER DAY
     Route: 055

REACTIONS (2)
  - THROMBOSIS [None]
  - PLATELET COUNT DECREASED [None]
